FAERS Safety Report 25975923 (Version 1)
Quarter: 2025Q4

REPORT INFORMATION
  Report Type: Spontaneous
  Country: US (occurrence: US)
  Receive Date: 20251029
  Receipt Date: 20251029
  Transmission Date: 20260118
  Serious: No
  Sender: MERZ
  Company Number: US-Merz Pharmaceuticals GmbH-2025100000025

PATIENT

DRUGS (1)
  1. XEOMIN [Suspect]
     Active Substance: INCOBOTULINUMTOXINA
     Indication: Neuromuscular blocking therapy
     Dosage: 70 INTERNATIONAL UNIT
     Route: 030

REACTIONS (4)
  - Injection site pain [Unknown]
  - Influenza like illness [Unknown]
  - Product use in unapproved indication [Unknown]
  - Product preparation issue [Unknown]
